FAERS Safety Report 7930371-0 (Version None)
Quarter: 2011Q4

REPORT INFORMATION
  Report Type: 
  Country: None (occurrence: None)
  Receive Date: 20111117
  Receipt Date: 20110816
  Transmission Date: 20120403
  Serious: Yes (Hospitalization)
  Sender: FDA-Public Use
  Company Number: GPV/UKR/11/0021361

PATIENT
  Age: 8 Year
  Sex: Male

DRUGS (1)
  1. CETIRIZINE [Suspect]
     Indication: NASAL CONGESTION
     Dosage: 1 IN 12 HR, ORAL
     Route: 048
     Dates: start: 20090325

REACTIONS (2)
  - URTICARIA [None]
  - PRURITUS [None]
